FAERS Safety Report 20813031 (Version 1)
Quarter: 2022Q2

REPORT INFORMATION
  Report Type: Spontaneous
  Country: US (occurrence: US)
  Receive Date: 20220511
  Receipt Date: 20220511
  Transmission Date: 20220720
  Serious: Yes (Other)
  Sender: FDA-Public Use
  Company Number: US-SA-SAC20220509000115

PATIENT
  Age: 63 Year
  Sex: Male

DRUGS (1)
  1. DUPIXENT [Suspect]
     Active Substance: DUPILUMAB
     Indication: Chronic rhinosinusitis with nasal polyps
     Dosage: UNK
     Route: 058
     Dates: start: 20220128

REACTIONS (5)
  - Prostate cancer stage II [Unknown]
  - Sinusitis [Unknown]
  - Discomfort [Unknown]
  - Rhinorrhoea [Unknown]
  - Injection site pain [Unknown]

NARRATIVE: CASE EVENT DATE: 20220423
